FAERS Safety Report 18632558 (Version 1)
Quarter: 2020Q4

REPORT INFORMATION
  Report Type: Spontaneous
  Country: JP (occurrence: JP)
  Receive Date: 20201218
  Receipt Date: 20201218
  Transmission Date: 20210114
  Serious: Yes (Death, Other)
  Sender: FDA-Public Use
  Company Number: JP-ASTELLAS-2020US044494

PATIENT
  Age: 91 Year
  Sex: Male

DRUGS (1)
  1. AMPHOTERICIN B, LIPOSOME [Suspect]
     Active Substance: AMPHOTERICIN B
     Indication: CANDIDA INFECTION
     Route: 042
     Dates: start: 20190516, end: 20190530

REACTIONS (3)
  - Multiple organ dysfunction syndrome [Fatal]
  - Platelet count decreased [Recovered/Resolved]
  - White blood cell count decreased [Not Recovered/Not Resolved]

NARRATIVE: CASE EVENT DATE: 20190516
